FAERS Safety Report 9079623 (Version 1)
Quarter: 2013Q1

REPORT INFORMATION
  Report Type: Spontaneous
  Country: US (occurrence: US)
  Receive Date: 20130215
  Receipt Date: 20130215
  Transmission Date: 20140127
  Serious: Yes (Hospitalization)
  Sender: FDA-Public Use
  Company Number: US-ASTRAZENECA-2013SE08915

PATIENT
  Sex: Male

DRUGS (3)
  1. NEXIUM [Suspect]
     Route: 048
  2. PRADAXA [Suspect]
     Route: 065
  3. TYKOSYN [Suspect]
     Route: 065

REACTIONS (5)
  - Adverse event [Unknown]
  - Drug dose omission [Unknown]
  - Capsule physical issue [None]
  - Multiple injuries [None]
  - Product packaging quantity issue [None]
